FAERS Safety Report 20181887 (Version 1)
Quarter: 2021Q4

REPORT INFORMATION
  Report Type: Spontaneous
  Country: IT (occurrence: IT)
  Receive Date: 20211214
  Receipt Date: 20211214
  Transmission Date: 20220303
  Serious: Yes (Hospitalization)
  Sender: FDA-Public Use
  Company Number: None

PATIENT
  Age: 77 Year
  Sex: Male

DRUGS (7)
  1. CARBOPLATIN [Suspect]
     Active Substance: CARBOPLATIN
     Indication: Neuroendocrine carcinoma
     Dosage: 403.9 MG, CYCLIC
     Route: 042
     Dates: start: 20210908, end: 20211114
  2. ETOPOSIDE [Suspect]
     Active Substance: ETOPOSIDE
     Indication: Neuroendocrine carcinoma
     Dosage: 158 MG, CYCLIC
     Route: 042
     Dates: start: 20210908, end: 20211114
  3. LYRICA [Concomitant]
     Active Substance: PREGABALIN
  4. LAMIVUDINE [Concomitant]
     Active Substance: LAMIVUDINE
  5. RAMIPRIL [Concomitant]
     Active Substance: RAMIPRIL
  6. PANTOPRAZOLE SODIUM [Concomitant]
     Active Substance: PANTOPRAZOLE SODIUM
  7. SILODOSIN [Concomitant]
     Active Substance: SILODOSIN

REACTIONS (5)
  - Transaminases increased [Recovering/Resolving]
  - Pancytopenia [Recovering/Resolving]
  - Dysphagia [Recovering/Resolving]
  - Stomatitis [Recovering/Resolving]
  - Off label use [Unknown]

NARRATIVE: CASE EVENT DATE: 20210908
